FAERS Safety Report 16851496 (Version 5)
Quarter: 2020Q3

REPORT INFORMATION
  Report Type: Spontaneous
  Country: US (occurrence: US)
  Receive Date: 20190925
  Receipt Date: 20200824
  Transmission Date: 20201102
  Serious: Yes (Other)
  Sender: FDA-Public Use
  Company Number: US-PFIZER INC-2017312053

PATIENT
  Age: 45 Year
  Sex: Female
  Weight: 83.91 kg

DRUGS (14)
  1. LYRICA [Suspect]
     Active Substance: PREGABALIN
     Dosage: 500 MG, DAILY [100 MG 2 IN AM, 1 PM, 2 BEDTIME]
     Route: 048
  2. LYRICA [Suspect]
     Active Substance: PREGABALIN
     Indication: FIBROMYALGIA
     Dosage: 50 MG, UNK
     Route: 048
  3. PREDNISONE. [Concomitant]
     Active Substance: PREDNISONE
     Indication: INFLAMMATION
     Dosage: 1.25 MG, DAILY
     Dates: start: 2015
  4. LYRICA [Suspect]
     Active Substance: PREGABALIN
     Indication: ARTHRALGIA
     Dosage: 500 MG, DAILY, (TAKE 2 CAPSULES IN THE A.M., 1 CAPSULE IN THE AFTERNOON, AND 2 CAPSULES AT BEDTIME)
     Route: 048
  5. LYRICA [Suspect]
     Active Substance: PREGABALIN
     Indication: NEURALGIA
     Dosage: 150 MG, 3X/DAY (TAKE 1 CAPSULE 3 TIMES DAILY)
     Route: 048
  6. LYRICA [Suspect]
     Active Substance: PREGABALIN
     Dosage: 350 MG, DAILY(TAKE 3 CAPSULES IN THE A.M., 2 IN THE AFTERNOON, AND 2 IN THE P.M.)
     Route: 048
  7. TRAMADOL. [Concomitant]
     Active Substance: TRAMADOL
     Indication: SCOLIOSIS
     Dosage: UNK, DAILY; (7 AND 1/3 TABLETS EACH DAY)
  8. TOPIRAMATE. [Concomitant]
     Active Substance: TOPIRAMATE
     Indication: MIGRAINE
     Dosage: 75 MG, DAILY
     Dates: start: 201907
  9. LYRICA [Suspect]
     Active Substance: PREGABALIN
     Dosage: 150 MG, AS NEEDED, (TAKE 3 CAPSULES BY MOUTH 3 TIMES DAILY AS NEEDED)
     Route: 048
  10. LYRICA [Suspect]
     Active Substance: PREGABALIN
     Dosage: 500 MG, DAILY (TAKE 2 CAPSULES IN THE A.M., 1 CAPSULE IN THE AFTERNOON, AND 2 CAPSULES AT BEDTIME)
     Route: 048
  11. LYRICA [Suspect]
     Active Substance: PREGABALIN
     Dosage: 300 MG, 3X/DAY
     Route: 048
     Dates: start: 2016
  12. LYRICA [Suspect]
     Active Substance: PREGABALIN
     Dosage: 450 MG, DAILY
     Route: 048
     Dates: start: 201908
  13. LYRICA [Suspect]
     Active Substance: PREGABALIN
     Dosage: 500 MG, DAILY (2 CAPSULES MORNING, 1 CAPSULE AFTERNOON, AND 2 CAPSULES IN EVENING)
     Route: 048
  14. LYRICA [Suspect]
     Active Substance: PREGABALIN
     Dosage: 600 MG, DAILY
     Route: 048

REACTIONS (12)
  - Vision blurred [Not Recovered/Not Resolved]
  - Gait disturbance [Not Recovered/Not Resolved]
  - Overdose [Unknown]
  - Withdrawal syndrome [Recovering/Resolving]
  - Insomnia [Unknown]
  - Intentional product misuse [Unknown]
  - Memory impairment [Not Recovered/Not Resolved]
  - Carpal tunnel syndrome [Unknown]
  - Weight increased [Recovering/Resolving]
  - Feeling abnormal [Unknown]
  - Anxiety [Unknown]
  - Headache [Unknown]

NARRATIVE: CASE EVENT DATE: 2016
